FAERS Safety Report 7013310-9 (Version None)
Quarter: 2010Q3

REPORT INFORMATION
  Report Type: 
  Country: None (occurrence: None)
  Receive Date: 20100909
  Receipt Date: 20100714
  Transmission Date: 20110219
  Serious: Yes (Other)
  Sender: FDA-Public Use
  Company Number: 2010SP038932

PATIENT
  Sex: Male

DRUGS (2)
  1. SAPHRIS [Suspect]
     Indication: ANXIETY
     Dosage: 5 MG ; QD ; PO
     Route: 048
  2. SAPHRIS [Suspect]
     Indication: DEPRESSION
     Dosage: 5 MG ; QD ; PO
     Route: 048

REACTIONS (5)
  - DYSKINESIA [None]
  - INAPPROPRIATE SCHEDULE OF DRUG ADMINISTRATION [None]
  - INCORRECT ROUTE OF DRUG ADMINISTRATION [None]
  - TREMOR [None]
  - UNDERDOSE [None]
